FAERS Safety Report 19627041 (Version 3)
Quarter: 2021Q3

REPORT INFORMATION
  Report Type: Report from Study
  Country: JP (occurrence: JP)
  Receive Date: 20210729
  Receipt Date: 20210819
  Transmission Date: 20211014
  Serious: Yes (Other)
  Sender: FDA-Public Use
  Company Number: JP-ASTELLAS-2021JP014763

PATIENT
  Age: 46 Year
  Sex: Female

DRUGS (11)
  1. OXINORM [Concomitant]
     Indication: TUMOUR PAIN
     Route: 048
     Dates: start: 202012
  2. URSODEOXYCHOLIC ACID [Concomitant]
     Active Substance: URSODIOL
     Indication: LIVER DISORDER
     Route: 048
     Dates: start: 20210628
  3. GLYCYRON [Concomitant]
     Indication: LIVER DISORDER
     Route: 048
     Dates: start: 20210705
  4. ALLELOCK [Concomitant]
     Active Substance: OLOPATADINE HYDROCHLORIDE
     Indication: ALLERGY PROPHYLAXIS
     Route: 048
     Dates: start: 202105
  5. REBAMIPIDE [Concomitant]
     Active Substance: REBAMIPIDE
     Indication: GASTRITIS PROPHYLAXIS
     Route: 048
     Dates: start: 20210603
  6. RESTAMIN CORTISONE [Concomitant]
     Active Substance: DIPHENHYDRAMINE HYDROCHLORIDE\HYDROCORTISONE ACETATE\NEOMYCIN SULFATE
     Indication: PRURITUS
     Dosage: ADEQUATE DOSE, AS NEEDED
     Route: 061
     Dates: start: 20210719
  7. OXYCONTIN [Concomitant]
     Active Substance: OXYCODONE HYDROCHLORIDE
     Indication: TUMOUR PAIN
     Route: 048
     Dates: start: 202012
  8. AMLODIPINE [Concomitant]
     Active Substance: AMLODIPINE BESYLATE
     Indication: HYPERTENSION
     Route: 048
     Dates: start: 20210624
  9. AZUNOL [Concomitant]
     Indication: THERAPEUTIC SKIN CARE TOPICAL
     Dosage: ADEQUATE DOSE, APPROPRIATE TIME
     Route: 061
     Dates: start: 20200719
  10. ASG?22CE [Suspect]
     Active Substance: ENFORTUMAB VEDOTIN
     Indication: TRIPLE NEGATIVE BREAST CANCER
     Dosage: 1.25 MG/KG (101 MG)/ONCE, 3 ADMINISTRATIONS ONE BREAK, UNKNOWN FREQ.
     Route: 065
     Dates: start: 20210719, end: 20210719
  11. SYMPROIC [Concomitant]
     Active Substance: NALDEMEDINE
     Indication: CONSTIPATION PROPHYLAXIS
     Dosage: 0.2 MG/DAY, UNKNOWN FREQ.
     Route: 048
     Dates: start: 202012

REACTIONS (1)
  - Hepatic function abnormal [Not Recovered/Not Resolved]

NARRATIVE: CASE EVENT DATE: 20210726
